FAERS Safety Report 9253909 (Version 2)
Quarter: 2013Q2

REPORT INFORMATION
  Report Type: Spontaneous
  Country: US (occurrence: US)
  Receive Date: 20130425
  Receipt Date: 20130517
  Transmission Date: 20140414
  Serious: Yes (Hospitalization, Other)
  Sender: FDA-Public Use
  Company Number: US-BAYER-2013-050213

PATIENT
  Age: 50 Year
  Sex: Female
  Weight: 62.59 kg

DRUGS (3)
  1. YAZ [Suspect]
     Indication: MENOPAUSAL SYMPTOMS
  2. GIANVI [Suspect]
  3. IRON [Concomitant]
     Dosage: 3 PILLS A DAY

REACTIONS (7)
  - Pulmonary embolism [None]
  - Deep vein thrombosis [Recovered/Resolved]
  - Pulmonary embolism [None]
  - Anaemia [None]
  - Menorrhagia [None]
  - Vaginal haemorrhage [None]
  - Deep vein thrombosis [None]
